FAERS Safety Report 18654621 (Version 2)
Quarter: 2021Q2

REPORT INFORMATION
  Report Type: Spontaneous
  Country: US (occurrence: US)
  Receive Date: 20201223
  Receipt Date: 20210414
  Transmission Date: 20210717
  Serious: Yes (Other)
  Sender: FDA-Public Use
  Company Number: US-GILEAD-2020-0509300

PATIENT
  Sex: Male
  Weight: 68.04 kg

DRUGS (13)
  1. TRUVADA [Suspect]
     Active Substance: EMTRICITABINE\TENOFOVIR DISOPROXIL FUMARATE
     Indication: HIV INFECTION
     Dosage: UNK
     Route: 048
     Dates: start: 2004, end: 2006
  2. TRUVADA [Suspect]
     Active Substance: EMTRICITABINE\TENOFOVIR DISOPROXIL FUMARATE
     Dosage: UNK
     Route: 048
     Dates: start: 2004, end: 2010
  3. TAMSULOSIN [Concomitant]
     Active Substance: TAMSULOSIN
  4. ABACAVIR. [Concomitant]
     Active Substance: ABACAVIR
  5. SUSTIVA [Concomitant]
     Active Substance: EFAVIRENZ
  6. ZIAGEN [Concomitant]
     Active Substance: ABACAVIR SULFATE
  7. AMLODIPINE [Concomitant]
     Active Substance: AMLODIPINE BESYLATE
  8. VITAMIN D3 [Concomitant]
     Active Substance: CHOLECALCIFEROL
  9. ATORVASTATIN [Concomitant]
     Active Substance: ATORVASTATIN
  10. VALACICLOVIR [Concomitant]
     Active Substance: VALACYCLOVIR HYDROCHLORIDE
  11. LAMIVUDINE. [Concomitant]
     Active Substance: LAMIVUDINE
  12. EPIVIR [Concomitant]
     Active Substance: LAMIVUDINE
  13. EFAVIRENZ. [Concomitant]
     Active Substance: EFAVIRENZ

REACTIONS (9)
  - Tooth loss [Not Recovered/Not Resolved]
  - Anhedonia [Unknown]
  - Anxiety [Not Recovered/Not Resolved]
  - Emotional distress [Unknown]
  - Pain [Unknown]
  - Chronic kidney disease [Not Recovered/Not Resolved]
  - Bone density decreased [Not Recovered/Not Resolved]
  - Hypertension [Not Recovered/Not Resolved]
  - Depression [Not Recovered/Not Resolved]

NARRATIVE: CASE EVENT DATE: 2010
